FAERS Safety Report 14494747 (Version 2)
Quarter: 2018Q2

REPORT INFORMATION
  Report Type: Report from Study
  Country: US (occurrence: US)
  Receive Date: 20180206
  Receipt Date: 20180501
  Transmission Date: 20180711
  Serious: No
  Sender: FDA-Public Use
  Company Number: US-MITSUBISHI TANABE PHARMA CORPORATION-MPE2018-0002169

PATIENT
  Sex: Male
  Weight: 81.27 kg

DRUGS (5)
  1. TRAMADOL HCL [Concomitant]
     Active Substance: TRAMADOL HYDROCHLORIDE
     Route: 048
     Dates: start: 20171013
  2. EPINEPHRINE. [Concomitant]
     Active Substance: EPINEPHRINE
     Route: 030
     Dates: start: 20171012
  3. GABAPENTIN. [Concomitant]
     Active Substance: GABAPENTIN
     Route: 048
     Dates: start: 20180112
  4. RADICAVA [Suspect]
     Active Substance: EDARAVONE
     Indication: AMYOTROPHIC LATERAL SCLEROSIS
     Route: 042
     Dates: start: 20171107
  5. RILUZOLE. [Concomitant]
     Active Substance: RILUZOLE
     Route: 048
     Dates: start: 20180112

REACTIONS (1)
  - Fall [Recovered/Resolved]
